FAERS Safety Report 6393870-1 (Version None)
Quarter: 2009Q4

REPORT INFORMATION
  Report Type: 
  Country: None (occurrence: None)
  Receive Date: 20091008
  Receipt Date: 20090929
  Transmission Date: 20100525
  Serious: Yes (Other)
  Sender: FDA-Public Use
  Company Number: BR-AVENTIS-200921123GDDC

PATIENT

DRUGS (2)
  1. OPTICLIK (INSULIN INJECTION PEN) [Suspect]
  2. INSULIN NOS [Suspect]

REACTIONS (3)
  - DEVICE MALFUNCTION [None]
  - NO ADVERSE EVENT [None]
  - PRODUCT QUALITY ISSUE [None]
